FAERS Safety Report 15816239 (Version 1)
Quarter: 2019Q1

REPORT INFORMATION
  Report Type: Spontaneous
  Country: US (occurrence: US)
  Receive Date: 20190113
  Receipt Date: 20190113
  Transmission Date: 20190417
  Serious: No
  Sender: FDA-Public Use
  Company Number: US-COOPERSURGICAL, INC.-US-2018CPS032749

PATIENT

DRUGS (4)
  1. LEVOTHYROXINE. [Concomitant]
     Active Substance: LEVOTHYROXINE
     Indication: THYROID DISORDER
     Dosage: UNK
  2. ROBAXIN [Concomitant]
     Active Substance: METHOCARBAMOL
     Indication: MUSCLE RELAXANT THERAPY
     Dosage: UNK
  3. PARAGARD T 380A [Suspect]
     Active Substance: COPPER
     Indication: CONTRACEPTION
     Dosage: UNK
     Route: 015
     Dates: start: 2015, end: 201806
  4. MS-CONTIN LONG-ACTING MORPHINE [Concomitant]
     Indication: PAIN
     Dosage: UNK

REACTIONS (11)
  - Menstruation irregular [Unknown]
  - Metrorrhagia [Unknown]
  - Vaginal discharge [Unknown]
  - Device breakage [Recovered/Resolved]
  - Device expulsion [Recovered/Resolved]
  - Abdominal distension [Unknown]
  - Cough [Unknown]
  - Abdominal pain upper [Unknown]
  - Foreign body in urogenital tract [Not Recovered/Not Resolved]
  - Weight increased [Unknown]
  - Complication of device removal [Not Recovered/Not Resolved]

NARRATIVE: CASE EVENT DATE: 2018
